FAERS Safety Report 17188559 (Version 2)
Quarter: 2020Q1

REPORT INFORMATION
  Report Type: Other
  Country: US (occurrence: US)
  Receive Date: 20191222
  Receipt Date: 20200324
  Transmission Date: 20200409
  Serious: No
  Sender: FDA-Public Use
  Company Number: US-ACORDA-ACO_161732_2019

PATIENT
  Sex: Female

DRUGS (3)
  1. CARBIDOPA AND LEVODOPA [Concomitant]
     Active Substance: CARBIDOPA\LEVODOPA
     Indication: PRODUCT USED FOR UNKNOWN INDICATION
     Dosage: UNK
     Route: 048
  2. INBRIJA [Suspect]
     Active Substance: LEVODOPA
     Indication: PARKINSON^S DISEASE
     Dosage: 84 MILLIGRAM, PRN
     Dates: start: 20191017
  3. INBRIJA [Suspect]
     Active Substance: LEVODOPA
     Indication: ON AND OFF PHENOMENON

REACTIONS (10)
  - Product residue present [Recovering/Resolving]
  - Musculoskeletal stiffness [Unknown]
  - Foot deformity [Unknown]
  - Cough [Recovering/Resolving]
  - Speech disorder [Recovered/Resolved]
  - Lacrimation increased [Recovering/Resolving]
  - Gait disturbance [Unknown]
  - Dyskinesia [Unknown]
  - Dyspnoea [Unknown]
  - Dry throat [Recovering/Resolving]
